FAERS Safety Report 19902955 (Version 1)
Quarter: 2021Q4

REPORT INFORMATION
  Report Type: Report from Study
  Country: None (occurrence: US)
  Receive Date: 20211001
  Receipt Date: 20211001
  Transmission Date: 20220304
  Serious: Yes (Death)
  Sender: FDA-Public Use
  Company Number: US-ABBVIE-21K-163-4100989-00

PATIENT
  Age: 62 Year
  Sex: Female

DRUGS (1)
  1. HUMIRA [Suspect]
     Active Substance: ADALIMUMAB
     Indication: Psoriasis
     Dosage: CF
     Route: 058

REACTIONS (6)
  - Neoplasm malignant [Fatal]
  - Pulmonary embolism [Fatal]
  - Malaise [Recovering/Resolving]
  - Back pain [Unknown]
  - Abdominal pain [Unknown]
  - Cyst [Unknown]

NARRATIVE: CASE EVENT DATE: 20210901
